FAERS Safety Report 6388813-0 (Version None)
Quarter: 2009Q4

REPORT INFORMATION
  Report Type: 
  Country: None (occurrence: None)
  Receive Date: 20091005
  Receipt Date: 20090924
  Transmission Date: 20100525
  Serious: Yes (Hospitalization, Other)
  Sender: FDA-Public Use
  Company Number: FR-ELI_LILLY_AND_COMPANY-FR200909005583

PATIENT
  Sex: Female

DRUGS (7)
  1. ZYPREXA [Suspect]
     Indication: DEPRESSION
     Dosage: UNK, UNK
     Route: 048
     Dates: start: 20080301, end: 20090730
  2. TEGRETOL [Concomitant]
     Route: 048
     Dates: start: 20090730, end: 20090821
  3. SERESTA [Concomitant]
     Dosage: UNK, UNK
     Route: 048
     Dates: start: 20090730, end: 20090821
  4. XANAX [Concomitant]
     Indication: DEPRESSION
     Route: 048
     Dates: start: 20080301, end: 20090730
  5. ADVIL LIQUI-GELS [Concomitant]
     Dates: start: 20090803, end: 20090807
  6. AUGMENTIN /00852501/ [Concomitant]
     Dates: start: 20090807, end: 20090810
  7. AUGMENTIN /00852501/ [Concomitant]
     Dosage: UNK, UNK
     Dates: start: 20090801

REACTIONS (3)
  - DRUG RASH WITH EOSINOPHILIA AND SYSTEMIC SYMPTOMS [None]
  - OFF LABEL USE [None]
  - SUICIDE ATTEMPT [None]
